FAERS Safety Report 12217621 (Version 1)
Quarter: 2016Q1

REPORT INFORMATION
  Report Type: Spontaneous
  Country: AU (occurrence: AU)
  Receive Date: 20160329
  Receipt Date: 20160329
  Transmission Date: 20160526
  Serious: Yes (Hospitalization, Other)
  Sender: FDA-Public Use
  Company Number: AU-APOTEX-2016AP007344

PATIENT
  Age: 48 Year
  Sex: Female

DRUGS (1)
  1. APO-LAMOTRIGINE [Suspect]
     Active Substance: LAMOTRIGINE
     Indication: EPILEPSY
     Dosage: UNK, UNKNOWN
     Route: 065

REACTIONS (7)
  - Toxic epidermal necrolysis [Unknown]
  - Acute kidney injury [Unknown]
  - Rash erythematous [Unknown]
  - Pneumonia [Unknown]
  - Deep vein thrombosis [Unknown]
  - Acute respiratory distress syndrome [Unknown]
  - Staphylococcal sepsis [Unknown]
